FAERS Safety Report 23510336 (Version 1)
Quarter: 2024Q1

REPORT INFORMATION
  Report Type: Spontaneous
  Country: US (occurrence: US)
  Receive Date: 20240211
  Receipt Date: 20240211
  Transmission Date: 20240410
  Serious: No
  Sender: FDA-Public Use
  Company Number: US-AIMMUNE THERAPEUTICS, INC.-2023AIMT00830

PATIENT

DRUGS (7)
  1. PALFORZIA [Suspect]
     Active Substance: PEANUT
     Indication: Food allergy
     Dosage: IDE (0.5MG-6MG), ONCE
     Route: 048
     Dates: start: 20230706, end: 20230706
  2. PALFORZIA [Suspect]
     Active Substance: PEANUT
     Dosage: 12 MG, 1X/DAY
     Route: 048
     Dates: start: 20230807, end: 20230810
  3. PALFORZIA [Suspect]
     Active Substance: PEANUT
     Dosage: 12 MG, ONCE, LAST DOSE PRIOR ECZEMA
     Route: 048
     Dates: start: 202308, end: 202308
  4. PALFORZIA [Suspect]
     Active Substance: PEANUT
     Dosage: 10 MG, ONCE, DOSE DECREASED
     Route: 048
     Dates: start: 20230811, end: 20230811
  5. PALFORZIA [Suspect]
     Active Substance: PEANUT
     Dosage: 9 MG, 1X/DAY, DOSE DECREASED
     Route: 048
     Dates: start: 20230812, end: 20230815
  6. PALFORZIA [Suspect]
     Active Substance: PEANUT
     Dosage: 10 MG, 1X/DAY, UP-DOSE
     Route: 048
     Dates: start: 20230816, end: 202308
  7. PALFORZIA [Suspect]
     Active Substance: PEANUT
     Dosage: 10 MG, ONCE, LAST DOSE PRIOR CHEST PAIN
     Route: 048
     Dates: start: 202308, end: 202308

REACTIONS (2)
  - Eczema [Unknown]
  - Chest pain [Unknown]

NARRATIVE: CASE EVENT DATE: 20230801
